FAERS Safety Report 17084865 (Version 1)
Quarter: 2019Q4

REPORT INFORMATION
  Report Type: Report from Study
  Country: US (occurrence: US)
  Receive Date: 20191127
  Receipt Date: 20191127
  Transmission Date: 20200122
  Serious: Yes (Hospitalization, Other)
  Sender: FDA-Public Use
  Company Number: US-JAZZ-2019-US-004587

PATIENT
  Sex: Male

DRUGS (14)
  1. NUVIGIL [Suspect]
     Active Substance: ARMODAFINIL
     Indication: NARCOLEPSY
     Dosage: 250 MG, UNK
     Route: 048
  2. SERTRALINE HCL [Concomitant]
     Active Substance: SERTRALINE HYDROCHLORIDE
  3. ABILIFY [Concomitant]
     Active Substance: ARIPIPRAZOLE
  4. GLUCAGON. [Concomitant]
     Active Substance: GLUCAGON
  5. CLONAZEPAM. [Concomitant]
     Active Substance: CLONAZEPAM
  6. LEVEMIR [Concomitant]
     Active Substance: INSULIN DETEMIR
  7. NOVOLOG [Concomitant]
     Active Substance: INSULIN ASPART
  8. TRIAMCINOLONE [Concomitant]
     Active Substance: TRIAMCINOLONE
  9. XYREM [Suspect]
     Active Substance: SODIUM OXYBATE
     Dosage: 3.5 G, BID
     Route: 048
     Dates: start: 201903
  10. LANTUS [Concomitant]
     Active Substance: INSULIN GLARGINE
  11. XYREM [Suspect]
     Active Substance: SODIUM OXYBATE
     Indication: CATAPLEXY
     Dosage: DOSE ADJUSTMENT
     Route: 048
     Dates: start: 201708, end: 201709
  12. OMEPRAZOLE. [Concomitant]
     Active Substance: OMEPRAZOLE
  13. XYREM [Suspect]
     Active Substance: SODIUM OXYBATE
     Indication: NARCOLEPSY
     Dosage: 2.25 G, BID
     Route: 048
     Dates: start: 201708, end: 201708
  14. XYREM [Suspect]
     Active Substance: SODIUM OXYBATE
     Dosage: 4.5 G, BID
     Route: 048
     Dates: start: 201709, end: 201810

REACTIONS (16)
  - Speech disorder [Not Recovered/Not Resolved]
  - Fall [Recovered/Resolved]
  - Panic attack [Recovering/Resolving]
  - Pre-existing condition improved [Unknown]
  - Feeling abnormal [Unknown]
  - Therapeutic response unexpected [Unknown]
  - Tachycardia [Not Recovered/Not Resolved]
  - Memory impairment [Not Recovered/Not Resolved]
  - Blood pressure increased [Unknown]
  - Decreased appetite [Not Recovered/Not Resolved]
  - Stress [Unknown]
  - Dyspnoea [Not Recovered/Not Resolved]
  - Decreased interest [Unknown]
  - Blepharospasm [Unknown]
  - Dehydration [Unknown]
  - Weight decreased [Recovering/Resolving]
